FAERS Safety Report 17508644 (Version 1)
Quarter: 2020Q1

REPORT INFORMATION
  Report Type: Report from Study
  Country: GB (occurrence: GB)
  Receive Date: 20200306
  Receipt Date: 20200306
  Transmission Date: 20200409
  Serious: Yes (Life-Threatening)
  Sender: FDA-Public Use
  Company Number: NVSC2020GB063363

PATIENT
  Sex: Male

DRUGS (1)
  1. HYRIMOZ [Suspect]
     Active Substance: ADALIMUMAB-ADAZ
     Indication: PSORIASIS
     Dosage: 1 DF, Q2W
     Route: 058

REACTIONS (5)
  - Near death experience [Unknown]
  - Pain [Unknown]
  - Swelling face [Unknown]
  - Depressed mood [Unknown]
  - Injection site reaction [Unknown]
